FAERS Safety Report 13098535 (Version 1)
Quarter: 2017Q1

REPORT INFORMATION
  Report Type: Spontaneous
  Country: US (occurrence: US)
  Receive Date: 20170109
  Receipt Date: 20170109
  Transmission Date: 20170428
  Serious: Yes (Other)
  Sender: FDA-Public Use
  Company Number: US-ELI_LILLY_AND_COMPANY-US201612010727

PATIENT
  Sex: Male
  Weight: 103.9 kg

DRUGS (12)
  1. HUMULIN R [Suspect]
     Active Substance: INSULIN HUMAN
     Dosage: 10 U, QD AT NOON
     Route: 065
     Dates: start: 20160926
  2. HUMULIN R [Suspect]
     Active Substance: INSULIN HUMAN
     Dosage: 35 U, EACH EVENING
  3. LANTUS [Concomitant]
     Active Substance: INSULIN GLARGINE
     Dosage: 40 U, BID
     Route: 058
  4. LIPITOR [Suspect]
     Active Substance: ATORVASTATIN CALCIUM
     Indication: PRODUCT USED FOR UNKNOWN INDICATION
     Dosage: 1 DF, QD
     Route: 048
     Dates: start: 20161111
  5. HUMULIN R [Suspect]
     Active Substance: INSULIN HUMAN
     Indication: PRODUCT USED FOR UNKNOWN INDICATION
     Dosage: 15 U, EACH MORNING
     Route: 065
     Dates: start: 20160926
  6. LYRICA [Suspect]
     Active Substance: PREGABALIN
     Indication: PRODUCT USED FOR UNKNOWN INDICATION
     Dosage: 1 DF, BID
     Route: 048
     Dates: start: 20161205
  7. PRINIVIL [Concomitant]
     Active Substance: LISINOPRIL
     Dosage: 0.5 DF, QD
     Route: 048
  8. FLORINEF ACETATE [Concomitant]
     Active Substance: FLUDROCORTISONE ACETATE
     Dosage: 1 DF, QD
     Route: 048
     Dates: start: 20160710
  9. HUMULIN R [Suspect]
     Active Substance: INSULIN HUMAN
     Dosage: 35 U, EACH EVENING
     Dates: start: 20160926
  10. ECOTRIN [Concomitant]
     Active Substance: ASPIRIN
     Dosage: 1 DF, QD
     Route: 048
     Dates: start: 20160926
  11. HUMULIN R [Suspect]
     Active Substance: INSULIN HUMAN
     Dosage: 20 U, EACH MORNING
     Route: 065
  12. PLAVIX [Concomitant]
     Active Substance: CLOPIDOGREL BISULFATE
     Dosage: 1 DF, QD
     Route: 048
     Dates: start: 20160926

REACTIONS (2)
  - Intentional product misuse [Unknown]
  - Cerebrovascular disorder [Unknown]
